FAERS Safety Report 22961440 (Version 5)
Quarter: 2024Q1

REPORT INFORMATION
  Report Type: Spontaneous
  Country: US (occurrence: US)
  Receive Date: 20230920
  Receipt Date: 20240123
  Transmission Date: 20240409
  Serious: No
  Sender: FDA-Public Use
  Company Number: US-PFIZER INC-PV202300148315

PATIENT
  Age: 13 Year
  Sex: Male

DRUGS (1)
  1. GENOTROPIN [Suspect]
     Active Substance: SOMATROPIN
     Dosage: UNK, DAILY, [ALTERNATE 2.4MG + 2.6MG DAILY]

REACTIONS (6)
  - Drug dose omission by device [Unknown]
  - Device defective [Unknown]
  - Device mechanical issue [Unknown]
  - Device leakage [Unknown]
  - Device breakage [Unknown]
  - Illness [Unknown]
